FAERS Safety Report 8172555-5 (Version None)
Quarter: 2012Q1

REPORT INFORMATION
  Report Type: 
  Country: None (occurrence: None)
  Receive Date: 20120229
  Receipt Date: 20120218
  Transmission Date: 20120608
  Serious: Yes (Hospitalization, Other)
  Sender: FDA-Public Use
  Company Number: US-BAYER-2011-045389

PATIENT
  Sex: Female
  Weight: 53.061 kg

DRUGS (8)
  1. YAZ [Suspect]
     Dosage: UNK
     Dates: start: 20080801, end: 20090201
  2. EMERGEN-C [Concomitant]
     Dosage: UNK
     Route: 048
     Dates: start: 20030101
  3. EXCEDRIN (MIGRAINE) [Concomitant]
     Dosage: UNK
     Route: 048
     Dates: start: 20080101, end: 20100101
  4. TRI-SPRINTEC [Concomitant]
  5. UNCODEABLE ^UNCLASSIFIABLE^ [Concomitant]
     Dosage: UNK UNK, PRN
     Route: 048
  6. NOR-QD [Concomitant]
  7. PARAGARD T 380A [Concomitant]
     Dosage: UNK
     Route: 015
     Dates: start: 20090602, end: 20090611
  8. MULTI-VITAMINS [Concomitant]
     Dosage: 1 DAILY
     Route: 048
     Dates: start: 20030201, end: 20100601

REACTIONS (8)
  - PULMONARY EMBOLISM [None]
  - MYOCARDIAL INFARCTION [None]
  - DEEP VEIN THROMBOSIS [None]
  - CHOLECYSTITIS CHRONIC [None]
  - CEREBROVASCULAR ACCIDENT [None]
  - PAIN [None]
  - MENTAL DISORDER [None]
  - GALLBLADDER DISORDER [None]
